FAERS Safety Report 11552808 (Version 2)
Quarter: 2015Q4

REPORT INFORMATION
  Report Type: Spontaneous
  Country: US (occurrence: US)
  Receive Date: 20150925
  Receipt Date: 20151005
  Transmission Date: 20160304
  Serious: No
  Sender: FDA-Public Use
  Company Number: US-PFIZER INC-2015250058

PATIENT
  Age: 46 Year
  Sex: Female

DRUGS (2)
  1. FASLODEX [Suspect]
     Active Substance: FULVESTRANT
     Indication: BREAST CANCER
     Dosage: UNK
  2. IBRANCE [Suspect]
     Active Substance: PALBOCICLIB
     Indication: BREAST CANCER
     Dosage: 125 MG, CYCLIC (1 CAPSULE, ONCE A DAY FOR 21 DAYS THEN REST FOR 7 DAYS)
     Route: 048

REACTIONS (3)
  - Product use issue [Unknown]
  - White blood cell count decreased [Unknown]
  - Neuropathy peripheral [Unknown]
